FAERS Safety Report 14453808 (Version 1)
Quarter: 2018Q1

REPORT INFORMATION
  Report Type: Spontaneous
  Country: FR (occurrence: FR)
  Receive Date: 20180129
  Receipt Date: 20180129
  Transmission Date: 20180509
  Serious: Yes (Hospitalization)
  Sender: FDA-Public Use
  Company Number: FR-TEVA-2018-FR-849368

PATIENT
  Age: 62 Year
  Sex: Female

DRUGS (9)
  1. ALPRAZOLAM. [Suspect]
     Active Substance: ALPRAZOLAM
     Indication: ANXIETY
     Route: 048
     Dates: end: 201709
  2. IMOVANE [Suspect]
     Active Substance: ZOPICLONE
     Indication: INSOMNIA
     Route: 048
  3. THERALENE 4 POUR CENT, SOLUTION BUVABLE EN GOUTTES [Concomitant]
     Active Substance: TRIMEPRAZINE
     Indication: INSOMNIA
     Route: 048
  4. TERCIAN 25 MG, COMPRIM? PELLICUL? S?CABLE [Concomitant]
     Active Substance: CYAMEMAZINE
     Indication: DEPRESSION
     Route: 048
  5. LASILIX FAIBLE 20 MG, COMPRIM? [Concomitant]
     Active Substance: FUROSEMIDE
     Indication: HYPERTENSION
     Route: 048
  6. ARIPIPRAZOLE. [Concomitant]
     Active Substance: ARIPIPRAZOLE
     Indication: BIPOLAR DISORDER
     Route: 048
  7. CLOMIPRAMINE [Concomitant]
     Active Substance: CLOMIPRAMINE
     Indication: DEPRESSION
     Route: 048
  8. MIRTAZAPINE. [Concomitant]
     Active Substance: MIRTAZAPINE
     Indication: DEPRESSION
     Route: 048
  9. SULFARLEM [Concomitant]
     Active Substance: ANETHOLTRITHION
     Indication: APTYALISM
     Route: 048

REACTIONS (2)
  - Dyspnoea [Recovered/Resolved]
  - Altered state of consciousness [Recovered/Resolved]

NARRATIVE: CASE EVENT DATE: 20170908
